FAERS Safety Report 10009075 (Version 2)
Quarter: 2014Q2

REPORT INFORMATION
  Report Type: Spontaneous
  Country: US (occurrence: None)
  Receive Date: 20140228
  Receipt Date: 20140530
  Transmission Date: 20141212
  Serious: No
  Sender: FDA-Public Use
  Company Number: 225403

PATIENT
  Age: 67 Year
  Sex: Female

DRUGS (3)
  1. PICATO GEL [Suspect]
     Indication: ACTINIC KERATOSIS
     Dosage: (1 D), TOPICAL
     Route: 061
     Dates: start: 20140114, end: 20140115
  2. EFFEXOR XR (VENLAFAXINE HYDROCHLORIDE) (75 MILLIGRAM, CAPSULE) (VENLAFAXINE HYDROCHLORIDE) [Concomitant]
  3. DELZICO (MESALAZINE) [Concomitant]

REACTIONS (7)
  - Application site irritation [None]
  - Application site burn [None]
  - Application site vesicles [None]
  - Application site pain [None]
  - Application site exfoliation [None]
  - Application site erosion [None]
  - Application site haemorrhage [None]
